FAERS Safety Report 18112835 (Version 1)
Quarter: 2020Q3

REPORT INFORMATION
  Report Type: Spontaneous
  Country: US (occurrence: US)
  Receive Date: 20200804
  Receipt Date: 20200804
  Transmission Date: 20201103
  Serious: No
  Sender: FDA-Public Use
  Company Number: None

PATIENT
  Age: 51 Year
  Sex: Female
  Weight: 120.6 kg

DRUGS (2)
  1. LISINOPRIL?HCTZ 10?12.5 MG [Suspect]
     Active Substance: HYDROCHLOROTHIAZIDE\LISINOPRIL
     Indication: HYPERTENSION
     Route: 048
  2. PARAXETINE [Concomitant]

REACTIONS (7)
  - Product quality issue [None]
  - Diarrhoea [None]
  - Product colour issue [None]
  - Abdominal discomfort [None]
  - Gastrooesophageal reflux disease [None]
  - Abdominal pain [None]
  - Product substitution issue [None]

NARRATIVE: CASE EVENT DATE: 20200711
